FAERS Safety Report 9119929 (Version 1)
Quarter: 2013Q1

REPORT INFORMATION
  Report Type: Report from Study
  Country: CA (occurrence: CA)
  Receive Date: 20130226
  Receipt Date: 20130226
  Transmission Date: 20140127
  Serious: Yes (Other)
  Sender: FDA-Public Use
  Company Number: CA-JNJFOC-20130212146

PATIENT
  Sex: Male
  Weight: 83.46 kg

DRUGS (31)
  1. REMICADE [Suspect]
     Indication: RHEUMATOID ARTHRITIS
     Route: 042
     Dates: start: 20110113
  2. REMICADE [Suspect]
     Indication: RHEUMATOID ARTHRITIS
     Dosage: ^PD^
     Route: 042
     Dates: start: 20110707
  3. REMICADE [Suspect]
     Indication: RHEUMATOID ARTHRITIS
     Dosage: 52 UNSPECIFIED
     Route: 042
     Dates: start: 200405
  4. COVERSYL [Concomitant]
     Route: 048
     Dates: start: 20110603
  5. COVERSYL [Concomitant]
     Route: 048
     Dates: start: 20110720
  6. CALCIUM 500 + D [Concomitant]
     Route: 048
     Dates: start: 20110720
  7. CALCIUM 500 + D [Concomitant]
     Dosage: WITH LUNCH AND SUPPER
     Route: 048
     Dates: start: 20110603
  8. CELEBREX [Concomitant]
     Route: 048
     Dates: start: 20110603
  9. CELEBREX [Concomitant]
     Route: 048
     Dates: start: 20110720
  10. ARAVA [Concomitant]
     Route: 048
     Dates: start: 20110603
  11. ARAVA [Concomitant]
     Route: 048
     Dates: start: 20110720
  12. SYNTHROID [Concomitant]
     Dosage: DOSE: 0.075 (UNITS UNSPECIFIED)
     Route: 048
     Dates: start: 20110603
  13. SYNTHROID [Concomitant]
     Route: 048
     Dates: start: 20110720
  14. NEXIUM [Concomitant]
     Route: 048
     Dates: start: 20110720
  15. NEXIUM [Concomitant]
     Route: 048
     Dates: start: 20110603
  16. LYRICA [Concomitant]
     Route: 048
     Dates: start: 20110603
  17. LYRICA [Concomitant]
     Route: 048
     Dates: start: 20110720
  18. ASAPHEN [Concomitant]
     Dosage: 0.075 (UNSPECIFIED)
     Route: 048
     Dates: start: 20110603
  19. ASAPHEN [Concomitant]
     Route: 048
     Dates: start: 20110720
  20. LIPITOR [Concomitant]
     Dosage: 0.075 (UNSPECIFIED)
     Route: 048
     Dates: start: 20110603
  21. LIPITOR [Concomitant]
     Route: 048
     Dates: start: 20110720
  22. APO-METOPROLOL [Concomitant]
     Dosage: 0.075 (UNSPECIFIED)
     Route: 048
     Dates: start: 20110603
  23. APO-METOPROLOL [Concomitant]
     Route: 048
     Dates: start: 20110720
  24. ALENDRONATE [Concomitant]
     Indication: OSTEOPOROSIS
     Route: 048
     Dates: start: 20110706
  25. ALENDRONATE [Concomitant]
     Indication: OSTEOPOROSIS
     Dosage: 0.075 (UNSPECIFIED)
     Route: 048
     Dates: start: 20110603
  26. AVELOX [Concomitant]
     Dosage: FOR 5 CONSECUTIVE DAYS
     Route: 048
     Dates: start: 20110615
  27. MYLAN-NITRO PUMP [Concomitant]
     Route: 060
     Dates: start: 20110603
  28. SPIRIVA [Concomitant]
     Route: 065
     Dates: start: 20110603
  29. APO-PREDNISONE [Concomitant]
     Dosage: FOR 5 DAYS
     Route: 065
     Dates: start: 20110603
  30. CLOBETASOL [Concomitant]
     Dosage: FOR 5 DAYS
     Route: 065
     Dates: start: 20110430
  31. AMOXICILLIN-CLAVULANATE [Concomitant]
     Dates: start: 20110603

REACTIONS (2)
  - Carpal tunnel syndrome [Recovering/Resolving]
  - Rheumatoid nodule [Recovering/Resolving]
